FAERS Safety Report 7717328-X (Version None)
Quarter: 2011Q3

REPORT INFORMATION
  Report Type: 
  Country: None (occurrence: None)
  Receive Date: 20110830
  Receipt Date: 20110822
  Transmission Date: 20111222
  Serious: Yes (Hospitalization)
  Sender: FDA-Public Use
  Company Number: US-JNJFOC-20101106865

PATIENT
  Sex: Female
  Weight: 63.3 kg

DRUGS (5)
  1. ZOMETA [Concomitant]
     Indication: PRODUCT USED FOR UNKNOWN INDICATION
     Route: 065
  2. DOXORUBICIN HYDROCHLORIDE [Suspect]
     Indication: MULTIPLE MYELOMA
     Route: 042
     Dates: start: 20100830, end: 20110304
  3. CYTOXAN [Suspect]
     Indication: MULTIPLE MYELOMA
     Route: 042
     Dates: start: 20100830, end: 20110304
  4. DEXAMETHASONE [Suspect]
     Indication: MULTIPLE MYELOMA
     Route: 048
     Dates: start: 20100830, end: 20110304
  5. VELCADE [Suspect]
     Indication: MULTIPLE MYELOMA
     Route: 042
     Dates: start: 20100830, end: 20110304

REACTIONS (1)
  - CELLULITIS [None]
